FAERS Safety Report 5257101-8 (Version None)
Quarter: 2007Q1

REPORT INFORMATION
  Report Type: 
  Country: None (occurrence: None)
  Receive Date: 20070302
  Receipt Date: 20070215
  Transmission Date: 20070707
  Serious: Yes (Death)
  Sender: FDA-Public Use
  Company Number: 2007S1000865

PATIENT
  Age: 51 Year
  Sex: Male
  Weight: 56.6996 kg

DRUGS (20)
  1. FENTANYL TRANSDERMAL SYSTEM [Suspect]
     Indication: BACK PAIN
     Dosage: 50 UG/HR;X1;TRANSDERMAL
     Route: 062
     Dates: start: 20060818, end: 20060909
  2. FENTANYL TRANSDERMAL SYSTEM [Suspect]
     Indication: CANCER PAIN
     Dosage: 50 UG/HR;X1;TRANSDERMAL
     Route: 062
     Dates: start: 20060818, end: 20060909
  3. FENTANYL TRANSDERMAL SYSTEM [Suspect]
     Indication: NECK PAIN
     Dosage: 50 UG/HR;X1;TRANSDERMAL
     Route: 062
     Dates: start: 20060818, end: 20060909
  4. FENTANYL TRANSDERMAL SYSTEM [Suspect]
     Indication: PAIN
     Dosage: 50 UG/HR;X1;TRANSDERMAL
     Route: 062
     Dates: start: 20060818, end: 20060909
  5. FENTANYL TRANSDERMAL SYSTEM [Suspect]
     Indication: PROCEDURAL PAIN
     Dosage: 50 UG/HR;X1;TRANSDERMAL
     Route: 062
     Dates: start: 20060818, end: 20060909
  6. FENTANYL TRANSDERMAL SYSTEM [Suspect]
     Indication: BACK PAIN
     Dosage: 200 UG/HR;X1;TRANSDERMAL
     Route: 062
     Dates: start: 20060905, end: 20060909
  7. FENTANYL TRANSDERMAL SYSTEM [Suspect]
     Indication: CANCER PAIN
     Dosage: 200 UG/HR;X1;TRANSDERMAL
     Route: 062
     Dates: start: 20060905, end: 20060909
  8. FENTANYL TRANSDERMAL SYSTEM [Suspect]
     Indication: NECK PAIN
     Dosage: 200 UG/HR;X1;TRANSDERMAL
     Route: 062
     Dates: start: 20060905, end: 20060909
  9. FENTANYL TRANSDERMAL SYSTEM [Suspect]
     Indication: PAIN
     Dosage: 200 UG/HR;X1;TRANSDERMAL
     Route: 062
     Dates: start: 20060905, end: 20060909
  10. FENTANYL TRANSDERMAL SYSTEM [Suspect]
     Indication: PROCEDURAL PAIN
     Dosage: 200 UG/HR;X1;TRANSDERMAL
     Route: 062
     Dates: start: 20060905, end: 20060909
  11. FENTANYL TRANSDERMAL SYSTEM [Suspect]
     Indication: BACK PAIN
     Dosage: 200 UG/HR;X1;TRANSDERMAL
     Route: 062
     Dates: start: 20060905, end: 20060909
  12. FENTANYL TRANSDERMAL SYSTEM [Suspect]
     Indication: CANCER PAIN
     Dosage: 200 UG/HR;X1;TRANSDERMAL
     Route: 062
     Dates: start: 20060905, end: 20060909
  13. FENTANYL TRANSDERMAL SYSTEM [Suspect]
     Indication: NECK PAIN
     Dosage: 200 UG/HR;X1;TRANSDERMAL
     Route: 062
     Dates: start: 20060905, end: 20060909
  14. FENTANYL TRANSDERMAL SYSTEM [Suspect]
     Indication: PAIN
     Dosage: 200 UG/HR;X1;TRANSDERMAL
     Route: 062
     Dates: start: 20060905, end: 20060909
  15. FENTANYL TRANSDERMAL SYSTEM [Suspect]
     Indication: PROCEDURAL PAIN
     Dosage: 200 UG/HR;X1;TRANSDERMAL
     Route: 062
     Dates: start: 20060905, end: 20060909
  16. DOXEPIN HYDROCHLORIDE [Suspect]
     Indication: DEPRESSION
     Dosage: SEE IMAGE
     Route: 048
     Dates: start: 20060909
  17. DOXEPIN HYDROCHLORIDE [Suspect]
     Indication: DEPRESSION
     Dosage: SEE IMAGE
     Route: 048
     Dates: start: 20060909
  18. ALPRAZOLAM [Suspect]
     Indication: ANXIETY
     Dosage: 1 MG;EVERY 3  HOURS;ORAL; 1 MG EVERY 4 HOURS; ORAL
     Route: 048
     Dates: start: 20060909
  19. ALPRAZOLAM [Suspect]
     Indication: ANXIETY
     Dosage: 1 MG;EVERY 3  HOURS;ORAL; 1 MG EVERY 4 HOURS; ORAL
     Route: 048
     Dates: start: 20060909
  20. OXYCODONE (CON.) [Concomitant]

REACTIONS (3)
  - DRUG ABUSER [None]
  - DRUG DEPENDENCE [None]
  - MULTIPLE DRUG OVERDOSE [None]
